FAERS Safety Report 6520672-5 (Version None)
Quarter: 2009Q4

REPORT INFORMATION
  Report Type: 
  Country: None (occurrence: None)
  Receive Date: 20091229
  Receipt Date: 20091222
  Transmission Date: 20100525
  Serious: Yes (Death, Hospitalization, Other)
  Sender: FDA-Public Use
  Company Number: CA-ABBOTT-09P-028-0594414-00

PATIENT
  Sex: Male
  Weight: 61.29 kg

DRUGS (3)
  1. LUPRON DEPOT [Suspect]
     Indication: PROSTATE CANCER
     Dates: start: 20061120, end: 20090911
  2. CASODEX [Concomitant]
     Indication: DRUG USE FOR UNKNOWN INDICATION
     Route: 048
  3. RISPERDAL [Concomitant]
     Indication: DRUG USE FOR UNKNOWN INDICATION
     Route: 048

REACTIONS (14)
  - ANAEMIA [None]
  - APHASIA [None]
  - ARRHYTHMIA [None]
  - ASTHENIA [None]
  - CHOKING [None]
  - CONFUSIONAL STATE [None]
  - CYSTITIS [None]
  - DECREASED APPETITE [None]
  - INFARCTION [None]
  - INFECTION [None]
  - MALNUTRITION [None]
  - MEMORY IMPAIRMENT [None]
  - PNEUMONIA [None]
  - RENAL DISORDER [None]
